FAERS Safety Report 4287262-9 (Version None)
Quarter: 2004Q1

REPORT INFORMATION
  Report Type: 
  Country: None (occurrence: None)
  Receive Date: 20040126
  Receipt Date: 20030909
  Transmission Date: 20041129
  Serious: No
  Sender: FDA-Public Use
  Company Number: USA030639919

PATIENT
  Age: 51 Year
  Sex: Female
  Weight: 55 kg

DRUGS (4)
  1. FORTEO [Suspect]
     Indication: OSTEOPOROSIS
     Dosage: 20 UG/DAY
     Dates: start: 20030501
  2. PREDNISONE [Concomitant]
  3. FOLIC ACID [Concomitant]
  4. PREMARIN [Concomitant]

REACTIONS (4)
  - BACK PAIN [None]
  - GROIN PAIN [None]
  - PRURITUS [None]
  - RASH PAPULAR [None]
